FAERS Safety Report 11148388 (Version 1)
Quarter: 2015Q2

REPORT INFORMATION
  Report Type: Spontaneous
  Country: FR (occurrence: FR)
  Receive Date: 20150529
  Receipt Date: 20150529
  Transmission Date: 20150821
  Serious: Yes (Other)
  Sender: FDA-Public Use
  Company Number: FR-NOVOPROD-450491

PATIENT
  Age: 78 Year
  Sex: Male
  Weight: 128 kg

DRUGS (13)
  1. SPIRONOLACTONE. [Concomitant]
     Active Substance: SPIRONOLACTONE
     Dosage: 25 MG, QD (1 DF DAILY)
     Route: 065
  2. DIFFU K [Concomitant]
     Active Substance: POTASSIUM CHLORIDE
     Dosage: 1 DF, QD
     Route: 065
  3. METFORMINE [Concomitant]
     Active Substance: METFORMIN HYDROCHLORIDE
     Dosage: 3 DF, QD (IN MORNING, AT NOON AND IN EVENING)
     Route: 048
  4. PREVISCAN (PENTOXIFYLLINE) [Concomitant]
     Active Substance: PENTOXIFYLLINE
     Dosage: 1.25 DF, QD
     Route: 048
  5. SULFARLEM [Concomitant]
     Active Substance: ANETHOLTRITHION
     Dosage: 2 DF, QD (1 DF IN MORNING AND IN EVENING)
     Route: 048
  6. LEVEMIR [Concomitant]
     Active Substance: INSULIN DETEMIR
     Dosage: 30 IU, QD (EVENING)
     Route: 065
  7. ALTIZIDE [Concomitant]
     Active Substance: ALTHIAZIDE
     Dosage: 15 MG, QD (1 DF DAILY)
     Route: 048
  8. VALSARTAN. [Concomitant]
     Active Substance: VALSARTAN
     Dosage: 80 MG, QD (1 DF DAILY)
     Route: 048
  9. BISOPROLOL [Concomitant]
     Active Substance: BISOPROLOL
     Dosage: 5 MG, QD (1 DF DAILY)
     Route: 048
  10. SPIRIVA [Concomitant]
     Active Substance: TIOTROPIUM BROMIDE MONOHYDRATE
     Dosage: 1 DF, QD
     Route: 055
  11. VICTOZA [Suspect]
     Active Substance: LIRAGLUTIDE
     Indication: TYPE 2 DIABETES MELLITUS
     Dosage: 1.2 MG, QD
     Route: 058
     Dates: start: 201412
  12. TRINITRINE [Concomitant]
     Active Substance: NITROGLYCERIN
     Dosage: 1 DF, QD (10 MG/24 HOUR)
     Route: 058
  13. MONTELUKAST SODIQUE [Concomitant]
     Dosage: 10 MG, QD (1 DF DAILY)
     Route: 065

REACTIONS (1)
  - Breast cancer male [Not Recovered/Not Resolved]

NARRATIVE: CASE EVENT DATE: 201503
